FAERS Safety Report 17286502 (Version 1)
Quarter: 2020Q1

REPORT INFORMATION
  Report Type: Spontaneous
  Country: US (occurrence: US)
  Receive Date: 20191230
  Receipt Date: 20191230
  Transmission Date: 20200409
  Serious: Yes (Hospitalization)
  Sender: FDA-Public Use
  Company Number: None

PATIENT
  Sex: Female

DRUGS (28)
  1. ONDANSETRON [Concomitant]
     Active Substance: ONDANSETRON
  2. AMLODIPINE [Concomitant]
     Active Substance: AMLODIPINE BESYLATE
  3. ACYCLOVIR. [Concomitant]
     Active Substance: ACYCLOVIR
  4. VALACYCLOVIR [Concomitant]
     Active Substance: VALACYCLOVIR HYDROCHLORIDE
  5. ZINC SULFATE. [Concomitant]
     Active Substance: ZINC SULFATE
  6. AMOX/K CLAV [Concomitant]
     Active Substance: AMOXICILLIN\CLAVULANATE POTASSIUM
  7. GLYC POW [Concomitant]
  8. PRAVASTATIN. [Concomitant]
     Active Substance: PRAVASTATIN
  9. NITROFURANTN [Concomitant]
     Active Substance: NITROFURANTOIN
  10. NINLARO [Concomitant]
     Active Substance: IXAZOMIB CITRATE
  11. POLYETHYL [Concomitant]
  12. DEXAMETHASON [Concomitant]
     Active Substance: DEXAMETHASONE
  13. ENOXAPARIN [Concomitant]
     Active Substance: ENOXAPARIN
  14. OXYCODONE [Concomitant]
     Active Substance: OXYCODONE
  15. QUINAPRIL. [Concomitant]
     Active Substance: QUINAPRIL
  16. GLATIRAMER 40MG/ML [Suspect]
     Active Substance: GLATIRAMER
     Indication: MULTIPLE SCLEROSIS
     Route: 058
  17. PANTOPRAZOLE [Concomitant]
     Active Substance: PANTOPRAZOLE
  18. METOPROLOL TARTRATE. [Concomitant]
     Active Substance: METOPROLOL TARTRATE
  19. HYDROCHLOROT [Concomitant]
     Active Substance: HYDROCHLOROTHIAZIDE
  20. CEPHALEXIN. [Concomitant]
     Active Substance: CEPHALEXIN
  21. XARELTO [Suspect]
     Active Substance: RIVAROXABAN
  22. SMZ/TMP DS [Concomitant]
     Active Substance: SULFAMETHOXAZOLE\TRIMETHOPRIM
  23. BENZONATATE. [Concomitant]
     Active Substance: BENZONATATE
  24. FUROSEMIDE. [Concomitant]
     Active Substance: FUROSEMIDE
  25. TRAMADOL. [Concomitant]
     Active Substance: TRAMADOL
  26. AZITHROMYCIN ANHYDROUS. [Concomitant]
     Active Substance: AZITHROMYCIN ANHYDROUS
  27. VALGANCICLOV [Concomitant]
  28. LOPERAMIDE [Concomitant]
     Active Substance: LOPERAMIDE

REACTIONS (1)
  - Pneumonia [None]
